FAERS Safety Report 4288076-6 (Version None)
Quarter: 2004Q1

REPORT INFORMATION
  Report Type: 
  Country: None (occurrence: None)
  Receive Date: 20040209
  Receipt Date: 20031201
  Transmission Date: 20041129
  Serious: No
  Sender: FDA-Public Use
  Company Number: US-GLAXOSMITHKLINE-A0441794A

PATIENT
  Age: 72 Year
  Sex: Male

DRUGS (5)
  1. PAXIL [Suspect]
     Indication: DEPRESSION
     Dosage: 12.5MG PER DAY
     Route: 048
  2. PAXIL [Suspect]
     Route: 048
  3. ALTACE [Concomitant]
  4. METOPROLOL [Concomitant]
  5. FLONASE [Concomitant]

REACTIONS (1)
  - DIARRHOEA [None]
